FAERS Safety Report 26154855 (Version 1)
Quarter: 2025Q4

REPORT INFORMATION
  Report Type: Spontaneous
  Country: EU (occurrence: EU)
  Receive Date: 20251215
  Receipt Date: 20251215
  Transmission Date: 20260119
  Serious: Yes (Death, Other)
  Sender: AUROBINDO
  Company Number: EU-AFSSAPS-RN2025001146

PATIENT
  Age: 88 Year
  Sex: Male

DRUGS (1)
  1. METFORMIN HYDROCHLORIDE [Suspect]
     Active Substance: METFORMIN HYDROCHLORIDE
     Indication: Diabetes mellitus
     Dosage: 3 GRAM, ONCE A DAY 1 G X 3/J
     Route: 061
     Dates: end: 20211013

REACTIONS (2)
  - Lactic acidosis [Fatal]
  - Drug level above therapeutic [Fatal]

NARRATIVE: CASE EVENT DATE: 20211013
